FAERS Safety Report 17462806 (Version 1)
Quarter: 2020Q1

REPORT INFORMATION
  Report Type: Report from Study
  Country: US (occurrence: US)
  Receive Date: 20200226
  Receipt Date: 20200226
  Transmission Date: 20200409
  Serious: No
  Sender: FDA-Public Use
  Company Number: NVSC2020US054587

PATIENT
  Age: 38 Year
  Sex: Female

DRUGS (1)
  1. COSENTYX [Suspect]
     Active Substance: SECUKINUMAB
     Indication: PSORIASIS
     Dosage: 300 MG, OTHER (2 SYRINGES) AT WEEK 4, THEN 300 MG (2 SYRINGES) Q4W THEREAFTER
     Route: 058

REACTIONS (2)
  - Psoriasis [Unknown]
  - Treatment failure [Unknown]
